FAERS Safety Report 9945747 (Version 1)
Quarter: 2014Q1

REPORT INFORMATION
  Report Type: Spontaneous
  Country: US (occurrence: US)
  Receive Date: 20140303
  Receipt Date: 20140303
  Transmission Date: 20141002
  Serious: Yes (Hospitalization, Other)
  Sender: FDA-Public Use
  Company Number: US-GILEAD-2014-0095770

PATIENT
  Age: 69 Year
  Sex: Female

DRUGS (2)
  1. LETAIRIS [Suspect]
     Indication: PULMONARY HYPERTENSION
     Dosage: 5 MG, QD
     Route: 065
     Dates: start: 20121206
  2. ADCIRCA [Concomitant]

REACTIONS (4)
  - Chest pain [Recovered/Resolved]
  - Productive cough [Recovered/Resolved]
  - Pneumonia [Unknown]
  - Abdominal pain upper [Recovered/Resolved]
